FAERS Safety Report 4280636-1 (Version None)
Quarter: 2004Q1

REPORT INFORMATION
  Report Type: 
  Country: None (occurrence: None)
  Receive Date: 20040127
  Receipt Date: 20040116
  Transmission Date: 20041129
  Serious: Yes (Other)
  Sender: FDA-Public Use
  Company Number: US-SHR-03-010930

PATIENT
  Age: 58 Year
  Sex: Female

DRUGS (5)
  1. CLIMARA [Suspect]
     Indication: OESTROGEN REPLACEMENT THERAPY
     Dosage: SEE IMAGE
     Route: 062
     Dates: start: 20010901, end: 20011022
  2. CLIMARA [Suspect]
     Indication: OESTROGEN REPLACEMENT THERAPY
     Dosage: SEE IMAGE
     Route: 062
     Dates: start: 20011001, end: 20030602
  3. TYLENOL (CAPLET) [Concomitant]
  4. CALCIUM (CALCIUM) [Concomitant]
  5. BLACK COHOSH (CIMICIFUGA RACEMOSA ROOT) [Concomitant]

REACTIONS (1)
  - BREAST CANCER [None]
